FAERS Safety Report 8463844-5 (Version None)
Quarter: 2012Q2

REPORT INFORMATION
  Report Type: 
  Country: None (occurrence: None)
  Receive Date: 20120323
  Receipt Date: 20111108
  Transmission Date: 20120825
  Serious: Yes (Hospitalization)
  Sender: FDA-Public Use
  Company Number: 163-21880-11111280

PATIENT
  Age: 77 Year
  Sex: Female

DRUGS (8)
  1. WARFARIN SODIUM [Concomitant]
  2. INSULIN [Concomitant]
  3. OMEPRAZOLE [Concomitant]
  4. FUROSEMIDE [Concomitant]
  5. REVLIMID [Suspect]
     Indication: MULTIPLE MYELOMA
     Dosage: 10 MG, DAILY X 21 DAYS, PO; 10 MG, DAILY X 21 DAYS, PO
     Route: 048
     Dates: start: 20110301
  6. REVLIMID [Suspect]
     Indication: MULTIPLE MYELOMA
     Dosage: 10 MG, DAILY X 21 DAYS, PO; 10 MG, DAILY X 21 DAYS, PO
     Route: 048
     Dates: start: 20090701, end: 20100201
  7. GLIPIZIDE [Concomitant]
  8. ATENOLOL [Concomitant]

REACTIONS (1)
  - GASTROINTESTINAL HAEMORRHAGE [None]
